FAERS Safety Report 7241134-6 (Version None)
Quarter: 2011Q1

REPORT INFORMATION
  Report Type: 
  Country: None (occurrence: None)
  Receive Date: 20110113
  Receipt Date: 20101230
  Transmission Date: 20110831
  Serious: Yes (Other)
  Sender: FDA-Public Use
  Company Number: 2011SP000439

PATIENT
  Sex: Female

DRUGS (4)
  1. PEG-INTRON [Suspect]
     Indication: HEPATITIS
     Dates: start: 20101230
  2. PEG-INTRON [Suspect]
     Indication: HEPATITIS
     Dates: start: 20050101
  3. RIBAVIRIN [Suspect]
     Indication: HEPATITIS
     Dates: start: 20101230
  4. RIBAVIRIN [Suspect]
     Indication: HEPATITIS
     Dates: start: 20050101

REACTIONS (3)
  - ENDOMETRIOSIS [None]
  - FATIGUE [None]
  - UTERINE CANCER [None]
